FAERS Safety Report 8516035-3 (Version None)
Quarter: 2012Q3

REPORT INFORMATION
  Report Type: 
  Country: None (occurrence: None)
  Receive Date: 20120717
  Receipt Date: 20120420
  Transmission Date: 20120928
  Serious: No
  Sender: FDA-Public Use
  Company Number: US-NOVEN-12US004508

PATIENT
  Sex: Male
  Weight: 113.38 kg

DRUGS (3)
  1. ELEVIL [Concomitant]
     Indication: NEURALGIA
     Route: 048
  2. FENTANYL [Suspect]
     Indication: PAIN
     Dosage: 50 UG/HR, UNK
  3. SOMA [Concomitant]
     Indication: PRODUCT USED FOR UNKNOWN INDICATION
     Route: 048

REACTIONS (3)
  - DYSGEUSIA [None]
  - INADEQUATE ANALGESIA [None]
  - PRODUCT QUALITY ISSUE [None]
